FAERS Safety Report 14250130 (Version 2)
Quarter: 2017Q4

REPORT INFORMATION
  Report Type: Spontaneous
  Country: US (occurrence: US)
  Receive Date: 20171205
  Receipt Date: 20171214
  Transmission Date: 20180321
  Serious: Yes (Other)
  Sender: FDA-Public Use
  Company Number: US-ASTRAZENECA-2017SF21084

PATIENT
  Age: 80 Year
  Sex: Female

DRUGS (17)
  1. FASLODEX [Suspect]
     Active Substance: FULVESTRANT
     Indication: BREAST CANCER METASTATIC
     Route: 030
     Dates: start: 20170821
  2. IBRANCE [Suspect]
     Active Substance: PALBOCICLIB
     Indication: BREAST CANCER METASTATIC
     Dosage: 125 MG CAPSULE BY MOUTH 21 DAYS ON AND 7 DAYS OFF
     Route: 048
     Dates: start: 20170807
  3. ASPIRIN. [Concomitant]
     Active Substance: ASPIRIN
     Indication: CARDIAC DISORDER
     Dosage: 81MG ONCE DAILY, STARTED TAKING 5 YEARS AGO. MADE HER STOP TAKING WHEN SHE WENT IN TO GET THE BIO...
     Dates: end: 201708
  4. POTASSIUM [Concomitant]
     Active Substance: POTASSIUM
     Indication: CARDIAC DISORDER
     Dosage: 150MG ONCE DAILY, TAKING FOR ABOUT 10 YEARS
  5. FASLODEX [Suspect]
     Active Substance: FULVESTRANT
     Indication: BREAST CANCER METASTATIC
     Route: 030
     Dates: start: 20170807
  6. IBRANCE [Suspect]
     Active Substance: PALBOCICLIB
     Indication: BREAST CANCER METASTATIC
     Route: 048
  7. LEVOTHYROXINE. [Concomitant]
     Active Substance: LEVOTHYROXINE
     Indication: PITUITARY ENLARGEMENT
     Dosage: THE DOSAGE HAS BEEN LOWERED SINCE STARTING IT
  8. COENZYME Q10 [Concomitant]
     Active Substance: UBIDECARENONE
     Indication: CARDIAC DISORDER
     Dosage: 100MG ONCE DAILY, STARTED TAKING TWO YEARS AGO
  9. LEVOTHYROXINE. [Concomitant]
     Active Substance: LEVOTHYROXINE
     Indication: PITUITARY ENLARGEMENT
  10. ANASTROZOLE. [Suspect]
     Active Substance: ANASTROZOLE
     Dosage: 1MG
     Route: 048
  11. FASLODEX [Suspect]
     Active Substance: FULVESTRANT
     Indication: BREAST CANCER METASTATIC
     Dosage: 250MG INJECTION INTO EACH HIP ONCE EVERY 4 WEEKS
     Route: 030
  12. FASLODEX [Suspect]
     Active Substance: FULVESTRANT
     Indication: BREAST CANCER METASTATIC
     Dosage: EVERY FOUR WEEKS
     Route: 030
  13. FASLODEX [Suspect]
     Active Substance: FULVESTRANT
     Indication: BREAST CANCER METASTATIC
     Route: 030
     Dates: start: 20170906
  14. BIOTIN [Concomitant]
     Active Substance: BIOTIN
     Indication: HAIR GROWTH ABNORMAL
     Dosage: 5000 ONCE DAILY
     Dates: start: 2014
  15. METOPROLOL TARTRATE. [Suspect]
     Active Substance: METOPROLOL TARTRATE
     Indication: BLOOD PRESSURE ABNORMAL
     Dosage: 50MG TWICE DAILY, STARTED TAKING AT LEAST 5 YEARS AGO.
     Route: 048
  16. ATORVASTATIN [Concomitant]
     Active Substance: ATORVASTATIN
     Indication: CARDIAC DISORDER
     Dosage: LOOMG ONCE DAILY, HAD BEEN TAKING OTHER STATINS AND THEN CHANGED TO ATORVASTATIN. HAD TAKEN FOR P...
     Dates: end: 201709
  17. MAGNESIUM [Concomitant]
     Active Substance: MAGNESIUM
     Indication: CARDIAC DISORDER
     Dosage: 300 MG ONCE DAILY, TAKING FOR ABOUT 10 YEARS

REACTIONS (12)
  - Metastasis [Unknown]
  - White blood cell count decreased [Not Recovered/Not Resolved]
  - Visual impairment [Unknown]
  - Drug ineffective [Unknown]
  - Metastases to spine [Unknown]
  - Metastases to bone [Unknown]
  - Alopecia [Unknown]
  - Back pain [Unknown]
  - Nausea [Unknown]
  - Platelet count decreased [Recovering/Resolving]
  - Red blood cell count decreased [Not Recovered/Not Resolved]
  - Headache [Unknown]

NARRATIVE: CASE EVENT DATE: 2017
